FAERS Safety Report 5256579-3 (Version None)
Quarter: 2007Q1

REPORT INFORMATION
  Report Type: 
  Country: None (occurrence: None)
  Receive Date: 20070306
  Receipt Date: 20070220
  Transmission Date: 20070707
  Serious: Yes (Hospitalization, Other)
  Sender: FDA-Public Use
  Company Number: 2007GB00268

PATIENT
  Age: 22851 Day
  Sex: Male
  Weight: 52 kg

DRUGS (4)
  1. QUETIAPINE FUMARATE [Suspect]
     Indication: MANIA
     Route: 048
     Dates: start: 20050301, end: 20061101
  2. DEPAKOTE [Suspect]
     Indication: MANIA
     Route: 048
     Dates: start: 20050301, end: 20061101
  3. ACTRAPID [Concomitant]
     Indication: DIABETES MELLITUS
     Dosage: 12 UNITS MANE AND 18 UNITS NOCTE
     Route: 058
  4. REBOXETINE [Concomitant]
     Indication: DEPRESSION
     Route: 048
     Dates: start: 20061001, end: 20061101

REACTIONS (3)
  - ANAEMIA [None]
  - NEUTROPENIA [None]
  - THROMBOCYTOPENIA [None]
